FAERS Safety Report 12241819 (Version 2)
Quarter: 2016Q2

REPORT INFORMATION
  Report Type: Spontaneous
  Country: US (occurrence: US)
  Receive Date: 20160406
  Receipt Date: 20160408
  Transmission Date: 20160815
  Serious: Yes (Death, Other)
  Sender: FDA-Public Use
  Company Number: US-PFIZER INC-2016196258

PATIENT
  Age: 43 Year
  Sex: Male

DRUGS (1)
  1. LYRICA [Suspect]
     Active Substance: PREGABALIN
     Indication: HYPOAESTHESIA
     Dosage: UNK
     Dates: start: 2015

REACTIONS (4)
  - Hypoaesthesia [Unknown]
  - Skin mass [Unknown]
  - Accident [Fatal]
  - Mobility decreased [Unknown]

NARRATIVE: CASE EVENT DATE: 201601
